FAERS Safety Report 5227445-4 (Version None)
Quarter: 2007Q1

REPORT INFORMATION
  Report Type: 
  Country: None (occurrence: None)
  Receive Date: 20061201
  Receipt Date: 20061017
  Transmission Date: 20070707
  Serious: No
  Sender: FDA-Public Use
  Company Number: US200610003354

PATIENT
  Sex: Female

DRUGS (2)
  1. CYMBALTA [Suspect]
     Dosage: 60 MG
  2. LITHIUM CARBONATE [Concomitant]

REACTIONS (2)
  - BRUXISM [None]
  - TARDIVE DYSKINESIA [None]
